FAERS Safety Report 4270564-X (Version None)
Quarter: 2004Q1

REPORT INFORMATION
  Report Type: 
  Country: None (occurrence: None)
  Receive Date: 20040113
  Receipt Date: 20040113
  Transmission Date: 20041129
  Serious: No
  Sender: FDA-Public Use
  Company Number: None

PATIENT
  Age: 85 Year
  Sex: Male
  Weight: 63.5036 kg

DRUGS (2)
  1. INFLUENZA VIRUS VACCINE-FLUVIRIN 2003-2004 FORMULA EVANS VACCINE [Suspect]
     Indication: INFLUENZA
     Dosage: 0.5ML ONCE INTRAMUSCULAR
     Route: 030
     Dates: start: 20031215, end: 20031215
  2. INFLUENZA VIRUS VACCINE-FLUVIRIN 2003-2004 FORMULA EVANS VACCINE [Suspect]
     Indication: PROPHYLAXIS
     Dosage: 0.5ML ONCE INTRAMUSCULAR
     Route: 030
     Dates: start: 20031215, end: 20031215

REACTIONS (2)
  - PAIN [None]
  - URINARY RETENTION [None]
